FAERS Safety Report 15874668 (Version 1)
Quarter: 2019Q1

REPORT INFORMATION
  Report Type: Other
  Country: US (occurrence: US)
  Receive Date: 20190126
  Receipt Date: 20190126
  Transmission Date: 20190417
  Serious: No
  Sender: FDA-Public Use
  Company Number: US-ACORDA-ACO_153063_2018

PATIENT
  Sex: Male

DRUGS (1)
  1. AMPYRA [Suspect]
     Active Substance: DALFAMPRIDINE
     Indication: PRODUCT USED FOR UNKNOWN INDICATION
     Dosage: 10 MG, Q 12 HRS
     Route: 048
     Dates: start: 20180806, end: 20180809

REACTIONS (6)
  - Anxiety [Unknown]
  - Headache [Unknown]
  - Dizziness [Unknown]
  - Dysuria [Unknown]
  - Poor quality sleep [Unknown]
  - Constipation [Unknown]
